FAERS Safety Report 25963485 (Version 1)
Quarter: 2025Q4

REPORT INFORMATION
  Report Type: Spontaneous
  Country: US (occurrence: None)
  Receive Date: 20251024
  Receipt Date: 20251024
  Transmission Date: 20260118
  Serious: Yes (Hospitalization)
  Sender: FDA-CTU
  Company Number: None

PATIENT
  Age: 68 Year
  Sex: Female

DRUGS (1)
  1. TADALAFIL [Suspect]
     Active Substance: TADALAFIL
     Indication: Pulmonary arterial hypertension
     Dosage: 40 MG TWICE A DAY ORAL
     Route: 048
     Dates: start: 20240206

REACTIONS (2)
  - Tumour excision [None]
  - Brain tumour operation [None]

NARRATIVE: CASE EVENT DATE: 20251008
